FAERS Safety Report 10643062 (Version 1)
Quarter: 2014Q4

REPORT INFORMATION
  Report Type: Spontaneous
  Country: US (occurrence: None)
  Receive Date: 20141209
  Receipt Date: 20141209
  Transmission Date: 20150529
  Serious: Yes (Disabling, Other)
  Sender: FDA-Public Use
  Company Number: None

PATIENT
  Age: 54 Year
  Sex: Female
  Weight: 65.77 kg

DRUGS (2)
  1. TRAMADOL HCL [Suspect]
     Active Substance: TRAMADOL HYDROCHLORIDE
     Indication: PAIN
     Dosage: 1 PILL
     Route: 048
     Dates: start: 20141031, end: 20141201
  2. TRAMADOL HCL [Suspect]
     Active Substance: TRAMADOL HYDROCHLORIDE
     Indication: SMALL FIBRE NEUROPATHY
     Dosage: 1 PILL
     Route: 048
     Dates: start: 20141031, end: 20141201

REACTIONS (5)
  - Visual acuity reduced [None]
  - Vision blurred [None]
  - Eye pain [None]
  - Arthralgia [None]
  - Eye inflammation [None]

NARRATIVE: CASE EVENT DATE: 20141201
